FAERS Safety Report 8675984 (Version 2)
Quarter: 2012Q4

REPORT INFORMATION
  Report Type: 
  Country: US (occurrence: US)
  Receive Date: 20120720
  Receipt Date: 20120913
  Transmission Date: 20130627
  Serious: Yes (Death, Other)
  Sender: FDA-Public Use
  Company Number: US-ASTRAZENECA-2012SE48586

PATIENT
  Age: 66 Year
  Sex: Female

DRUGS (3)
  1. NEXIUM [Suspect]
     Route: 048
  2. CLONAZEPAM [Suspect]
     Route: 048
  3. TEMAZEPAM [Suspect]
     Route: 065

REACTIONS (2)
  - Death [Fatal]
  - Dementia [Unknown]
